FAERS Safety Report 9694701 (Version 1)
Quarter: 2013Q4

REPORT INFORMATION
  Report Type: Spontaneous
  Country: US (occurrence: US)
  Receive Date: 20131119
  Receipt Date: 20131119
  Transmission Date: 20140711
  Serious: No
  Sender: FDA-Public Use
  Company Number: US-009507513-1311USA002502

PATIENT
  Age: 22 Year
  Sex: Female

DRUGS (2)
  1. IMPLANON [Suspect]
     Dosage: STANDARD
     Route: 059
     Dates: start: 201205
  2. ANAPROX [Concomitant]

REACTIONS (2)
  - Menorrhagia [Not Recovered/Not Resolved]
  - Medical device complication [Unknown]
